FAERS Safety Report 6529178-0 (Version None)
Quarter: 2010Q1

REPORT INFORMATION
  Report Type: 
  Country: None (occurrence: None)
  Receive Date: 20100104
  Receipt Date: 20091218
  Transmission Date: 20100710
  Serious: Yes (Hospitalization)
  Sender: FDA-Public Use
  Company Number: 1000010855

PATIENT
  Age: 36 Year
  Sex: Female

DRUGS (4)
  1. LEXAPRO [Suspect]
     Indication: DEPRESSION
     Dosage: 20 MG (20 MG, 1 IN 1 D), ORAL
     Route: 048
     Dates: start: 20091101, end: 20091204
  2. LEXAPRO [Suspect]
     Indication: DEPRESSION
     Dosage: }200 MG (ONCE), ORAL
     Route: 048
     Dates: start: 20091204, end: 20091204
  3. LORAZEPAM [Suspect]
     Indication: DEPRESSION
     Dosage: 0.5 MG (0.5 MG, 1 IN 1 D), ORAL
     Route: 048
     Dates: start: 20091101, end: 20091204
  4. LORAZEPAM [Suspect]
     Indication: DEPRESSION
     Dosage: 10 MG (ONCE), ORAL
     Route: 048
     Dates: start: 20091204, end: 20091204

REACTIONS (4)
  - ELECTROCARDIOGRAM QT PROLONGED [None]
  - ELECTROLYTE IMBALANCE [None]
  - OVERDOSE [None]
  - SUICIDE ATTEMPT [None]
